FAERS Safety Report 13986010 (Version 1)
Quarter: 2017Q3

REPORT INFORMATION
  Report Type: Spontaneous
  Country: US (occurrence: US)
  Receive Date: 20170919
  Receipt Date: 20170919
  Transmission Date: 20171128
  Serious: Yes (Disabling, Other)
  Sender: FDA-Public Use
  Company Number: None

PATIENT
  Age: 78 Year
  Sex: Male
  Weight: 55.35 kg

DRUGS (11)
  1. LEVOFLOXACIN 500 [Suspect]
     Active Substance: LEVOFLOXACIN
     Indication: CELLULITIS
     Dosage: ?          QUANTITY:1 TABLET(S);?
     Route: 048
     Dates: start: 20170901, end: 20170910
  2. FOUROSEMIDE [Concomitant]
  3. ELIQUIS [Concomitant]
     Active Substance: APIXABAN
  4. ALLOPURINOL. [Concomitant]
     Active Substance: ALLOPURINOL
  5. LUMIGAN [Concomitant]
     Active Substance: BIMATOPROST
  6. METFORMIN HYDROCHLORIDE. [Concomitant]
     Active Substance: METFORMIN HYDROCHLORIDE
  7. ASPIRIN. [Concomitant]
     Active Substance: ASPIRIN
  8. PRESERVISION [Concomitant]
     Active Substance: MINERALS\VITAMINS
  9. MAG64 [Concomitant]
  10. METOPROLOL SUUCINATE [Concomitant]
  11. ATORVASTATIN CALCIUM. [Concomitant]
     Active Substance: ATORVASTATIN CALCIUM

REACTIONS (3)
  - Muscle spasms [None]
  - Cellulitis [None]
  - Pain in extremity [None]

NARRATIVE: CASE EVENT DATE: 20170907
